FAERS Safety Report 9830688 (Version 1)
Quarter: 2014Q1

REPORT INFORMATION
  Report Type: Spontaneous
  Country: BR (occurrence: BR)
  Receive Date: 20140120
  Receipt Date: 20140120
  Transmission Date: 20141002
  Serious: Yes (Death)
  Sender: FDA-Public Use
  Company Number: BR-ASTRAZENECA-2014SE03995

PATIENT
  Age: 67 Year
  Sex: Female

DRUGS (6)
  1. MEROPENEM [Suspect]
     Indication: POSTOPERATIVE CARE
     Route: 042
  2. ZIDOVUDINE [Concomitant]
     Indication: HIV INFECTION
  3. LAMIVUDINE [Concomitant]
     Indication: HIV INFECTION
  4. ATAZANAVIR/RITONAVIR [Concomitant]
     Indication: HIV INFECTION
  5. RITONAVIR/ATAZANAVIR [Concomitant]
     Indication: HIV INFECTION
  6. VANCOMYCIN [Concomitant]
     Indication: POSTOPERATIVE CARE

REACTIONS (1)
  - Septic shock [Fatal]
